FAERS Safety Report 5541955-1 (Version None)
Quarter: 2007Q4

REPORT INFORMATION
  Report Type: 
  Country: None (occurrence: None)
  Receive Date: 20071210
  Receipt Date: 20061211
  Transmission Date: 20080405
  Serious: No
  Sender: FDA-Public Use
  Company Number: US-AMGEN-KDL203304

PATIENT
  Sex: Female

DRUGS (1)
  1. ENBREL [Suspect]
     Indication: RHEUMATOID ARTHRITIS
     Dates: start: 20000601, end: 20050901

REACTIONS (4)
  - ARTHRALGIA [None]
  - DYSPNOEA [None]
  - EAR PAIN [None]
  - MUSCULOSKELETAL PAIN [None]
